FAERS Safety Report 9714768 (Version 1)
Quarter: 2013Q4

REPORT INFORMATION
  Report Type: Report from Study
  Country: NL (occurrence: NL)
  Receive Date: 20131126
  Receipt Date: 20131126
  Transmission Date: 20140711
  Serious: Yes (Hospitalization)
  Sender: FDA-Public Use
  Company Number: NL-TEVA-445369ISR

PATIENT
  Age: 57 Year
  Sex: Female

DRUGS (8)
  1. MYOCET [Suspect]
     Dosage: 0 MILLIGRAM DAILY;
  2. PACLITAXEL [Suspect]
     Indication: BREAST CANCER METASTATIC
     Dosage: 178 MILLIGRAM DAILY;
     Route: 042
     Dates: start: 20130306, end: 20130417
  3. BEVACIZUMAB [Suspect]
     Indication: BREAST CANCER METASTATIC
     Dosage: 800 MILLIGRAM DAILY;
     Route: 042
     Dates: start: 20130306, end: 20130417
  4. NEXIUM [Concomitant]
     Dosage: 20 MILLIGRAM DAILY;
     Dates: start: 20120927
  5. TEMAZEPAM [Concomitant]
     Dosage: 10 MILLIGRAM DAILY;
     Dates: start: 20130321
  6. APD [Concomitant]
     Dates: start: 20120927
  7. CALCICHEW D3 500/400 [Concomitant]
     Dates: start: 20120927
  8. NITRAZEPAM [Concomitant]
     Dosage: 30 MILLIGRAM DAILY;
     Dates: start: 20120927

REACTIONS (4)
  - Extravasation [Recovered/Resolved]
  - Breast discolouration [Recovered/Resolved]
  - Body temperature increased [Recovered/Resolved]
  - Breast swelling [Recovered/Resolved]
